FAERS Safety Report 12319721 (Version 1)
Quarter: 2016Q2

REPORT INFORMATION
  Report Type: Spontaneous
  Country: US (occurrence: US)
  Receive Date: 20160429
  Receipt Date: 20160429
  Transmission Date: 20160815
  Serious: No
  Sender: FDA-Public Use
  Company Number: US-ROCHE-1608212

PATIENT
  Sex: Male
  Weight: 68.1 kg

DRUGS (5)
  1. ADCIRCA [Concomitant]
     Active Substance: TADALAFIL
  2. AMBIEN [Concomitant]
     Active Substance: ZOLPIDEM TARTRATE
  3. REMODULIN [Suspect]
     Active Substance: TREPROSTINIL
     Indication: PRODUCT USED FOR UNKNOWN INDICATION
     Route: 065
  4. ESBRIET [Suspect]
     Active Substance: PIRFENIDONE
     Indication: IDIOPATHIC PULMONARY FIBROSIS
     Dosage: THREE CAPSULES THREE TIMES A DAY WITH FOOD
     Route: 048
     Dates: start: 20150330
  5. ESBRIET [Suspect]
     Active Substance: PIRFENIDONE
     Indication: PULMONARY ARTERIAL HYPERTENSION

REACTIONS (14)
  - Injection site pain [Unknown]
  - Enteritis infectious [Unknown]
  - Nausea [Unknown]
  - Application site discolouration [Unknown]
  - Vomiting [Unknown]
  - Hypertension [Unknown]
  - Application site irritation [Unknown]
  - Decreased appetite [Unknown]
  - Insomnia [Unknown]
  - Injection site erythema [Unknown]
  - Abdominal discomfort [Unknown]
  - Lethargy [Unknown]
  - Diarrhoea [Unknown]
  - Fatigue [Unknown]
